FAERS Safety Report 10442037 (Version 2)
Quarter: 2018Q4

REPORT INFORMATION
  Report Type: Spontaneous
  Country: US (occurrence: US)
  Receive Date: 20140909
  Receipt Date: 20181123
  Transmission Date: 20190204
  Serious: Yes (Other)
  Sender: FDA-Public Use
  Company Number: US-TEVA-507684USA

PATIENT
  Age: 23 Year
  Sex: Female

DRUGS (1)
  1. PLAN B ONE-STEP [Suspect]
     Active Substance: LEVONORGESTREL
     Indication: POST COITAL CONTRACEPTION
     Dosage: 1.5 MILLIGRAM DAILY;
     Route: 048
     Dates: start: 201112, end: 201112

REACTIONS (8)
  - Back pain [Recovered/Resolved]
  - Breast discomfort [Recovered/Resolved]
  - Pelvic pain [Recovered/Resolved]
  - Breast pain [Recovered/Resolved]
  - Maternal exposure before pregnancy [Unknown]
  - Anembryonic gestation [Recovered/Resolved]
  - Evacuation of retained products of conception [Recovered/Resolved]
  - Vaginal discharge [Recovered/Resolved]

NARRATIVE: CASE EVENT DATE: 201112
